FAERS Safety Report 23160256 (Version 3)
Quarter: 2024Q1

REPORT INFORMATION
  Report Type: Report from Study
  Country: GB (occurrence: GB)
  Receive Date: 20231108
  Receipt Date: 20240206
  Transmission Date: 20240409
  Serious: Yes (Other)
  Sender: FDA-Public Use
  Company Number: GB-002147023-NVSC2023GB030015

PATIENT
  Sex: Female

DRUGS (1)
  1. SIPONIMOD [Suspect]
     Active Substance: SIPONIMOD
     Indication: Secondary progressive multiple sclerosis
     Dosage: 2 MG, QD
     Route: 048
     Dates: start: 202301

REACTIONS (7)
  - Optic neuritis [Recovering/Resolving]
  - Lower respiratory tract infection [Recovered/Resolved]
  - Ocular icterus [Unknown]
  - Urinary tract infection [Recovering/Resolving]
  - Muscle spasms [Unknown]
  - Insomnia [Unknown]
  - Somniphobia [Unknown]

NARRATIVE: CASE EVENT DATE: 20230206
